FAERS Safety Report 12676927 (Version 1)
Quarter: 2016Q3

REPORT INFORMATION
  Report Type: Spontaneous
  Country: US (occurrence: US)
  Receive Date: 20160823
  Receipt Date: 20160823
  Transmission Date: 20161109
  Serious: No
  Sender: FDA-Public Use
  Company Number: US-TEVA-647949USA

PATIENT
  Sex: Male
  Weight: 86.26 kg

DRUGS (1)
  1. CLONIDINE. [Suspect]
     Active Substance: CLONIDINE
     Indication: HYPERTENSION
     Route: 062
     Dates: start: 2007

REACTIONS (2)
  - Application site irritation [Unknown]
  - Application site rash [Not Recovered/Not Resolved]
